FAERS Safety Report 7574725-3 (Version None)
Quarter: 2011Q2

REPORT INFORMATION
  Report Type: 
  Country: None (occurrence: None)
  Receive Date: 20110627
  Receipt Date: 20110617
  Transmission Date: 20111010
  Serious: Yes (Other)
  Sender: FDA-Public Use
  Company Number: PHHY2011GB47702

PATIENT
  Age: 32 Year
  Sex: Male
  Weight: 82 kg

DRUGS (5)
  1. ALBUTEROL [Concomitant]
  2. TEGRETOL [Concomitant]
     Dosage: 400 MG, BID
  3. CLENIL [Concomitant]
  4. TEGRETOL [Concomitant]
     Dosage: 500 MG, BID
  5. LOSARTAN POTASSIUM [Suspect]
     Indication: HYPERTENSION
     Dosage: 50 MG, UNK
     Dates: start: 20100813, end: 20101109

REACTIONS (1)
  - CONVULSION [None]
